FAERS Safety Report 8887420 (Version 1)
Quarter: 2012Q4

REPORT INFORMATION
  Report Type: 
  Country: US (occurrence: US)
  Receive Date: 20121105
  Receipt Date: 20121105
  Transmission Date: 20130627
  Serious: Yes (Hospitalization)
  Sender: FDA-Public Use
  Company Number: US-BAXTER-2012BAX021703

PATIENT
  Sex: Female

DRUGS (2)
  1. ARALAST NP [Suspect]
     Indication: ALPHA-1 ANTI-TRYPSIN DEFICIENCY
     Dosage: UNKNOWN
     Route: 042
     Dates: start: 20120928
  2. ARALAST NP [Suspect]
     Route: 065

REACTIONS (1)
  - Pneumothorax [Recovered/Resolved]
